FAERS Safety Report 24976222 (Version 1)
Quarter: 2025Q1

REPORT INFORMATION
  Report Type: Spontaneous
  Country: US (occurrence: US)
  Receive Date: 20250217
  Receipt Date: 20250217
  Transmission Date: 20250408
  Serious: Yes (Death, Other)
  Sender: CHIESI
  Company Number: US-CHIESI-2025CHF01021

PATIENT
  Sex: Female

DRUGS (3)
  1. KENGREAL [Suspect]
     Active Substance: CANGRELOR
     Indication: Coronary artery bypass
     Route: 065
  2. KENGREAL [Suspect]
     Active Substance: CANGRELOR
     Indication: Off label use
     Route: 065
  3. HEPARIN [Suspect]
     Active Substance: HEPARIN SODIUM
     Indication: Product used for unknown indication
     Route: 065

REACTIONS (5)
  - Haemorrhage [Fatal]
  - Cardiogenic shock [Fatal]
  - Neurological symptom [Unknown]
  - Off label use [Recovered/Resolved]
  - Off label use [Recovered/Resolved]
